FAERS Safety Report 5956003-9 (Version None)
Quarter: 2008Q4

REPORT INFORMATION
  Report Type: 
  Country: None (occurrence: None)
  Receive Date: 20081112
  Receipt Date: 20081027
  Transmission Date: 20090506
  Serious: Yes (Other)
  Sender: FDA-Public Use
  Company Number: DSU-2008-01783

PATIENT
  Age: 40 Year
  Sex: Male
  Weight: 106.5953 kg

DRUGS (3)
  1. BENICAR HCT [Suspect]
     Indication: HYPERTENSION
     Dosage: 40/12.5 MG (QD), PER ORAL
     Route: 048
  2. CENTRUM MULTIVITAMIN (VITAMINS NOS, MINERALS NOS) (VITAMINS NOS, MINER [Concomitant]
  3. ASPIRIN (ACETYLSALICYLIC ACID) (81 MILLIGRAM) (ACETYLSALICYLIC ACID) [Concomitant]

REACTIONS (2)
  - SYSTEMIC LUPUS ERYTHEMATOSUS [None]
  - TREATMENT NONCOMPLIANCE [None]
